FAERS Safety Report 21197455 (Version 9)
Quarter: 2025Q3

REPORT INFORMATION
  Report Type: Spontaneous
  Country: US (occurrence: US)
  Receive Date: 20220810
  Receipt Date: 20250716
  Transmission Date: 20251020
  Serious: No
  Sender: SANOFI AVENTIS
  Company Number: US-SA-2022SA323842

PATIENT
  Age: 74 Year
  Sex: Female

DRUGS (1)
  1. DUPIXENT [Suspect]
     Active Substance: DUPILUMAB
     Indication: Dermatitis atopic
     Dosage: 300 MG, QOW
     Route: 058
     Dates: start: 202207

REACTIONS (10)
  - White blood cell count increased [Unknown]
  - Constipation [Unknown]
  - Sleep disorder [Unknown]
  - Tinnitus [Unknown]
  - Weight increased [Unknown]
  - Upper respiratory tract infection [Unknown]
  - Injection site pain [Unknown]
  - Rash [Unknown]
  - Therapeutic response decreased [Unknown]
  - Product dose omission in error [Unknown]
